FAERS Safety Report 8106755-7 (Version None)
Quarter: 2012Q1

REPORT INFORMATION
  Report Type: 
  Country: None (occurrence: None)
  Receive Date: 20120202
  Receipt Date: 20120123
  Transmission Date: 20120608
  Serious: Yes (Hospitalization)
  Sender: FDA-Public Use
  Company Number: DE-UCBSA-050157

PATIENT
  Sex: Female

DRUGS (3)
  1. KEPPRA [Suspect]
     Dosage: STRENGTH 1000MG, DOSE UNKNOWN
  2. VALPROATE SODIUM [Concomitant]
     Dosage: 300 UNKNOWN DOSE
  3. KEPPRA [Suspect]
     Dosage: UNKNOWN DOSE
     Route: 048

REACTIONS (3)
  - SKIN IRRITATION [None]
  - DRUG ADMINISTRATION ERROR [None]
  - DYSPHAGIA [None]
